FAERS Safety Report 9493356 (Version 1)
Quarter: 2013Q3

REPORT INFORMATION
  Report Type: Spontaneous
  Country: FR (occurrence: FR)
  Receive Date: 20130902
  Receipt Date: 20130902
  Transmission Date: 20140515
  Serious: Yes (Other)
  Sender: FDA-Public Use
  Company Number: PHHY2013FR094842

PATIENT
  Age: 39 Year
  Sex: Male

DRUGS (3)
  1. RITALINE [Suspect]
     Dosage: 60 TO 100 MG, DAILY
     Route: 042
  2. BROMAZEPAM [Concomitant]
     Dosage: UNK UKN, UNK
  3. METHADONE [Concomitant]
     Dosage: UNN, UKN, UNN

REACTIONS (2)
  - Delirium [Unknown]
  - Drug abuse [Unknown]
